FAERS Safety Report 9751907 (Version 2)
Quarter: 2014Q1

REPORT INFORMATION
  Report Type: Spontaneous
  Country: JP (occurrence: JP)
  Receive Date: 20131213
  Receipt Date: 20140122
  Transmission Date: 20141002
  Serious: Yes (Hospitalization, Other)
  Sender: FDA-Public Use
  Company Number: JP-BRISTOL-MYERS SQUIBB COMPANY-19897685

PATIENT
  Age: 3 Decade
  Sex: Female

DRUGS (3)
  1. BYETTA PEN DISPOSABLE [Suspect]
     Dosage: BYETTA SUBCUTANEOUS INJECTION 5 MICRO GRAM PEN 300,10MCG 15 PER DAY
     Route: 058
     Dates: start: 20131203, end: 20131203
  2. METGLUCO [Suspect]
     Route: 048
     Dates: start: 20131203, end: 20131203
  3. AMARYL [Suspect]
     Route: 048
     Dates: start: 20131203, end: 20131203

REACTIONS (4)
  - Hypoglycaemia [Recovered/Resolved]
  - Suicide attempt [Unknown]
  - Intentional overdose [Unknown]
  - Nausea [Recovered/Resolved]
